FAERS Safety Report 17391791 (Version 2)
Quarter: 2024Q3

REPORT INFORMATION
  Report Type: Spontaneous
  Country: DE (occurrence: DE)
  Receive Date: 20200207
  Receipt Date: 20240716
  Transmission Date: 20241016
  Serious: Yes (Other)
  Sender: MYLAN
  Company Number: DE-VIFOR (INTERNATIONAL) INC.-VIT-2019-09606

PATIENT
  Age: 31 Year
  Sex: Male
  Weight: 110 kg

DRUGS (10)
  1. CLOZAPINE [Suspect]
     Active Substance: CLOZAPINE
     Indication: Schizoaffective disorder
     Dosage: 100 MILLIGRAM
     Route: 065
  2. VENLAFAXINE [Suspect]
     Active Substance: VENLAFAXINE HYDROCHLORIDE
     Indication: Product used for unknown indication
     Dosage: 150 MILLIGRAM
     Route: 065
  3. LITHIUM SULFATE [Suspect]
     Active Substance: LITHIUM SULFATE
     Indication: Schizoaffective disorder
     Dosage: 900 MILLIGRAM
     Route: 065
  4. PIPAMPERONE [Concomitant]
     Active Substance: PIPAMPERONE
     Dosage: UNK
     Route: 065
  5. DOXEPIN [Concomitant]
     Active Substance: DOXEPIN
     Dosage: UNK
     Route: 065
  6. ARIPIPRAZOLE [Concomitant]
     Active Substance: ARIPIPRAZOLE
     Dosage: UNK
     Route: 065
  7. AMISULPRIDE [Concomitant]
     Active Substance: AMISULPRIDE
     Dosage: UNK
     Route: 065
  8. MIRTAZAPINE [Concomitant]
     Active Substance: MIRTAZAPINE
     Dosage: UNK
     Route: 065
  9. OLANZAPINE [Concomitant]
     Active Substance: OLANZAPINE
     Dosage: UNK
     Route: 065
  10. RISPERIDONE [Concomitant]
     Active Substance: RISPERIDONE
     Dosage: UNK
     Route: 065

REACTIONS (2)
  - Cardiomyopathy [Unknown]
  - Product use in unapproved indication [Unknown]
